FAERS Safety Report 25163912 (Version 2)
Quarter: 2025Q2

REPORT INFORMATION
  Report Type: Spontaneous
  Country: SK (occurrence: SK)
  Receive Date: 20250405
  Receipt Date: 20250425
  Transmission Date: 20250716
  Serious: Yes (Death, Other)
  Sender: ABBVIE
  Company Number: SK-ABBVIE-2133846US

PATIENT

DRUGS (1)
  1. OZURDEX [Suspect]
     Active Substance: DEXAMETHASONE
     Indication: Diabetic retinal oedema
     Route: 050

REACTIONS (6)
  - Death [Fatal]
  - Cataract [Unknown]
  - Intraocular pressure increased [Unknown]
  - Drug ineffective [Unknown]
  - Open globe injury [Unknown]
  - Vitrectomy [Unknown]
